FAERS Safety Report 8582943-0 (Version None)
Quarter: 2012Q3

REPORT INFORMATION
  Report Type: 
  Country: None (occurrence: None)
  Receive Date: 20120809
  Receipt Date: 20120801
  Transmission Date: 20120928
  Serious: Yes (Hospitalization)
  Sender: FDA-Public Use
  Company Number: US-JNJFOC-20110202036

PATIENT
  Sex: Male
  Weight: 77.2 kg

DRUGS (16)
  1. CIMZIA [Concomitant]
     Dates: start: 20091106
  2. VICODIN [Concomitant]
     Dosage: 5/500 MG
  3. ANTIBIOTICS [Concomitant]
     Indication: INFLAMMATORY BOWEL DISEASE
  4. DILAUDID [Concomitant]
  5. MULTI-VITAMINS [Concomitant]
  6. LIALDA [Concomitant]
     Route: 048
  7. IMURAN [Concomitant]
  8. REMICADE [Suspect]
     Indication: INFLAMMATORY BOWEL DISEASE
     Route: 042
     Dates: start: 20081201, end: 20090130
  9. CIMZIA [Concomitant]
     Indication: INFLAMMATORY BOWEL DISEASE
     Dates: start: 20100826
  10. MESALAMINE [Concomitant]
  11. HYDROCORTISONE [Concomitant]
  12. PREDNISONE TAB [Concomitant]
  13. OSCAL VITAMIN D [Concomitant]
  14. PEPCID [Concomitant]
  15. AZATHIOPRINE SODIUM [Concomitant]
  16. IRON SUPPLEMENT [Concomitant]

REACTIONS (2)
  - INFLAMMATORY BOWEL DISEASE [None]
  - COLITIS ULCERATIVE [None]
